FAERS Safety Report 4952105-4 (Version None)
Quarter: 2006Q1

REPORT INFORMATION
  Report Type: 
  Country: None (occurrence: None)
  Receive Date: 20060320
  Receipt Date: 20060307
  Transmission Date: 20060701
  Serious: Yes (Other)
  Sender: FDA-Public Use
  Company Number: 2006011332

PATIENT
  Age: 62 Year

DRUGS (4)
  1. AMLODIPINE [Suspect]
     Indication: ILL-DEFINED DISORDER
     Dosage: ORAL
     Route: 048
     Dates: start: 20040601
  2. COAPROVEL (HYDROCHLOROTHIAZIDE, IRBESARTAN) [Suspect]
     Indication: ILL-DEFINED DISORDER
     Dosage: ORAL
     Route: 048
     Dates: start: 20040101
  3. ZOCOR [Suspect]
     Indication: HYPERCHOLESTEROLAEMIA
     Dosage: 20 MG (20 MG, DAILY), ORAL
     Route: 048
     Dates: start: 20040301, end: 20060101
  4. ISOTEN (BISOPROLOL FUMARATE) [Concomitant]

REACTIONS (2)
  - CUTANEOUS VASCULITIS [None]
  - PSEUDO LYMPHOMA [None]
